FAERS Safety Report 11671813 (Version 1)
Quarter: 2015Q4

REPORT INFORMATION
  Report Type: Spontaneous
  Country: US (occurrence: US)
  Receive Date: 20151027
  Receipt Date: 20151027
  Transmission Date: 20160304
  Serious: No
  Sender: FDA-Public Use
  Company Number: US-ELI_LILLY_AND_COMPANY-US201006004625

PATIENT
  Age: 58 Year
  Sex: Female
  Weight: 33.11 kg

DRUGS (13)
  1. SIMVASTATIN. [Concomitant]
     Active Substance: SIMVASTATIN
     Dosage: UNK, UNKNOWN
  2. BABY ASPIRIN [Concomitant]
     Active Substance: ASPIRIN
     Dosage: UNK, UNKNOWN
  3. PLAVIX [Concomitant]
     Active Substance: CLOPIDOGREL BISULFATE
     Dosage: UNK, UNKNOWN
  4. ENALAPRIL MALEATE. [Concomitant]
     Active Substance: ENALAPRIL MALEATE
     Dosage: UNK, UNKNOWN
  5. LEVOTHYROXINE. [Concomitant]
     Active Substance: LEVOTHYROXINE
     Dosage: UNK, UNKNOWN
  6. PHENYTOIN. [Concomitant]
     Active Substance: PHENYTOIN
     Dosage: UNK, UNKNOWN
  7. CALCIUM CITRATE [Concomitant]
     Active Substance: CALCIUM CITRATE
     Dosage: UNK, UNKNOWN
  8. MULTIVITAMIN [Concomitant]
     Active Substance: VITAMINS
     Dosage: UNK, UNKNOWN
  9. METFORMIN [Concomitant]
     Active Substance: METFORMIN HYDROCHLORIDE
     Dosage: 200 MG, UNKNOWN
  10. ARICEPT [Concomitant]
     Active Substance: DONEPEZIL HYDROCHLORIDE
     Dosage: UNK, UNKNOWN
  11. DEXTROAMPHETAMINE. [Concomitant]
     Active Substance: DEXTROAMPHETAMINE
     Dosage: UNK, UNKNOWN
  12. VITAMIN D3 [Concomitant]
     Active Substance: CHOLECALCIFEROL
     Dosage: UNK, UNKNOWN
  13. FORTEO [Suspect]
     Active Substance: TERIPARATIDE
     Indication: OSTEOPOROSIS
     Dosage: 20 UG, UNKNOWN
     Dates: start: 20090515

REACTIONS (5)
  - Bone density decreased [Unknown]
  - Decreased appetite [Unknown]
  - Weight decreased [Unknown]
  - Injection site bruising [Unknown]
  - Injection site erythema [Unknown]

NARRATIVE: CASE EVENT DATE: 201002
